FAERS Safety Report 6933351-7 (Version None)
Quarter: 2010Q3

REPORT INFORMATION
  Report Type: 
  Country: None (occurrence: None)
  Receive Date: 20100820
  Receipt Date: 20100809
  Transmission Date: 20110219
  Serious: Yes (Hospitalization)
  Sender: FDA-Public Use
  Company Number: PL-WYE-H16084010

PATIENT
  Sex: Male
  Weight: 85 kg

DRUGS (4)
  1. TEMSIROLIMUS [Suspect]
     Indication: RENAL CELL CARCINOMA
     Route: 042
     Dates: start: 20100113, end: 20100630
  2. HEPARIN SODIUM [Concomitant]
     Indication: THROMBOSIS
     Dosage: NOT PROVIDED
     Dates: start: 20100708, end: 20100716
  3. HEPARIN SODIUM [Concomitant]
     Indication: PROPHYLAXIS
  4. BEVACIZUMAB [Suspect]
     Indication: RENAL CELL CARCINOMA
     Route: 042
     Dates: start: 20100113, end: 20100630

REACTIONS (2)
  - LUNG ABSCESS [None]
  - PNEUMONIA [None]
